FAERS Safety Report 8054271-3 (Version None)
Quarter: 2012Q1

REPORT INFORMATION
  Report Type: 
  Country: None (occurrence: None)
  Receive Date: 20120118
  Receipt Date: 20120111
  Transmission Date: 20120608
  Serious: Yes (Other)
  Sender: FDA-Public Use
  Company Number: PHHY2012BR002569

PATIENT
  Age: 88 Year
  Sex: Female

DRUGS (1)
  1. EXELON [Suspect]
     Indication: DEMENTIA ALZHEIMER'S TYPE
     Dosage: 9.5 MG, ONE PATCH A DAY
     Route: 062

REACTIONS (3)
  - FEAR [None]
  - SELF-INJURIOUS IDEATION [None]
  - INTENTIONAL SELF-INJURY [None]
